FAERS Safety Report 15341173 (Version 1)
Quarter: 2018Q3

REPORT INFORMATION
  Report Type: Spontaneous
  Country: GB (occurrence: GB)
  Receive Date: 20180831
  Receipt Date: 20180831
  Transmission Date: 20181010
  Serious: Yes (Other)
  Sender: FDA-Public Use
  Company Number: PHHY2018GB084498

PATIENT
  Age: 33 Year
  Sex: Female
  Weight: 86 kg

DRUGS (12)
  1. NORETHISTERONE [Concomitant]
     Active Substance: NORETHINDRONE
     Dosage: 2 DF, QD (FROM DAY 19 TO DAY 26 OF E...)
     Route: 065
     Dates: start: 20180622
  2. MEDROXYPROGESTERONE ACETATE. [Concomitant]
     Active Substance: MEDROXYPROGESTERONE ACETATE
     Dosage: 1 TO BE TAKEN TWICE DAILY OR TO BE TAKEN THREE
     Route: 065
     Dates: start: 20180722
  3. MEDROXYPROGESTERONE ACETATE. [Concomitant]
     Active Substance: MEDROXYPROGESTERONE ACETATE
     Indication: PRODUCT USED FOR UNKNOWN INDICATION
     Dosage: 1 TO BE TAKEN TWICE DAILY OR TO BE TAKEN THREE
     Route: 065
     Dates: start: 20180622
  4. COCODAMOL [Concomitant]
     Active Substance: ACETAMINOPHEN\CODEINE PHOSPHATE
     Dosage: TAKE 1 OR 2 4 TIMES A DAY
     Route: 065
     Dates: start: 20180427
  5. NORETHISTERONE [Concomitant]
     Active Substance: NORETHINDRONE
     Indication: PRODUCT USED FOR UNKNOWN INDICATION
     Dosage: 2 DF, QD (FROM DAY 19 TO DAY 26 OF E...)
     Route: 065
     Dates: start: 20180518
  6. COCODAMOL [Concomitant]
     Active Substance: ACETAMINOPHEN\CODEINE PHOSPHATE
     Indication: PRODUCT USED FOR UNKNOWN INDICATION
     Dosage: TAKE 1 OR 2 4 TIMES A DAY
     Route: 065
     Dates: start: 20180416
  7. CODEINE PHOSPHATE [Suspect]
     Active Substance: CODEINE PHOSPHATE
     Indication: PRODUCT USED FOR UNKNOWN INDICATION
     Dosage: UNK
     Route: 065
  8. PROCHLORPERAZINE. [Concomitant]
     Active Substance: PROCHLORPERAZINE
     Indication: PRODUCT USED FOR UNKNOWN INDICATION
     Dosage: TAKE ONE OR TWO UP TO THREE TIMES DAILY AS REQU...
     Route: 065
     Dates: start: 20180504
  9. CITALOPRAM [Concomitant]
     Active Substance: CITALOPRAM HYDROBROMIDE
     Indication: PRODUCT USED FOR UNKNOWN INDICATION
     Dosage: 1 DF, QD
     Route: 065
     Dates: start: 20171120
  10. MEFENAMIC ACID. [Concomitant]
     Active Substance: MEFENAMIC ACID
     Indication: PRODUCT USED FOR UNKNOWN INDICATION
     Dosage: 6 DF, QD
     Route: 065
     Dates: start: 20180725
  11. PROCHLORPERAZINE. [Concomitant]
     Active Substance: PROCHLORPERAZINE
     Dosage: TAKE ONE OR TWO UP TO THREE TIMES DAILY AS REQU...
     Route: 065
     Dates: start: 20180601
  12. PARACETAMOL [Concomitant]
     Active Substance: ACETAMINOPHEN
     Indication: PRODUCT USED FOR UNKNOWN INDICATION
     Dosage: TAKE ONE OR TWO TABLETS FOUR TIMES A DAY WHEN R...
     Route: 065
     Dates: start: 20180427

REACTIONS (1)
  - Dependence [Recovering/Resolving]

NARRATIVE: CASE EVENT DATE: 20180725
